FAERS Safety Report 6193364-2 (Version None)
Quarter: 2009Q2

REPORT INFORMATION
  Report Type: 
  Country: None (occurrence: None)
  Receive Date: 20090518
  Receipt Date: 20090512
  Transmission Date: 20091009
  Serious: Yes (Other)
  Sender: FDA-Public Use
  Company Number: US-JNJFOC-20090502781

PATIENT
  Age: 25 Year
  Sex: Male

DRUGS (6)
  1. HALOPERIDOL [Suspect]
     Indication: PSYCHOTIC DISORDER
     Route: 065
  2. HALOPERIDOL [Suspect]
     Indication: PARANOIA
     Route: 065
  3. ZIPRASIDONE HCL [Suspect]
     Indication: PSYCHOTIC DISORDER
     Route: 065
  4. ZIPRASIDONE HCL [Suspect]
     Indication: PARANOIA
     Route: 065
  5. ESCITALOPRAM [Suspect]
     Indication: OBSESSIVE-COMPULSIVE DISORDER
     Route: 065
  6. VARENICLINE [Interacting]
     Indication: SMOKING CESSATION THERAPY
     Route: 065

REACTIONS (6)
  - ABNORMAL BEHAVIOUR [None]
  - AGGRESSION [None]
  - CONDITION AGGRAVATED [None]
  - DRUG INTERACTION [None]
  - PARANOIA [None]
  - PSYCHOTIC DISORDER [None]
